FAERS Safety Report 16429972 (Version 2)
Quarter: 2019Q3

REPORT INFORMATION
  Report Type: Report from Study
  Country: FR (occurrence: FR)
  Receive Date: 20190614
  Receipt Date: 20190701
  Transmission Date: 20191004
  Serious: Yes (Other)
  Sender: FDA-Public Use
  Company Number: FR-ROCHE-2336041

PATIENT
  Age: 77 Year
  Sex: Male
  Weight: 97 kg

DRUGS (13)
  1. BACTRIM [Concomitant]
     Active Substance: SULFAMETHOXAZOLE\TRIMETHOPRIM
     Indication: INFECTION PROPHYLAXIS
     Route: 048
     Dates: start: 20160405
  2. LEDERFOLIN [Concomitant]
     Active Substance: LEUCOVORIN CALCIUM
     Indication: INFECTION PROPHYLAXIS
     Route: 048
     Dates: start: 20160405
  3. ZELITREX [Concomitant]
     Active Substance: VALACYCLOVIR HYDROCHLORIDE
     Indication: INFECTION PROPHYLAXIS
     Route: 048
     Dates: start: 20160405
  4. ACIDE ACETYLSALICYLIQUE [Concomitant]
     Active Substance: ASPIRIN
     Route: 048
     Dates: start: 2005
  5. PRESERVISION 3 [Concomitant]
     Active Substance: MINERALS\OMEGA-3 FATTY ACIDS\VITAMINS
     Route: 048
  6. AMLODIPINE [Concomitant]
     Active Substance: AMLODIPINE BESYLATE
     Indication: HYPERTENSION
     Route: 048
     Dates: start: 2005
  7. CHLORAMBUCIL [Suspect]
     Active Substance: CHLORAMBUCIL
     Indication: CHRONIC LYMPHOCYTIC LEUKAEMIA
     Dosage: CHLORAMBUCIL 0.5 MILLIGRAMS PER KILOGRAM (MG/KG) ORALLY AT DAY 1 AND DAY 15 AT OF EACH 28 DAY CYCLE
     Route: 048
     Dates: start: 20160404
  8. EPREX [Concomitant]
     Active Substance: ERYTHROPOIETIN
     Indication: ANAEMIA
     Route: 042
     Dates: start: 20160520
  9. BISOPROLOL [Concomitant]
     Active Substance: BISOPROLOL
     Route: 048
     Dates: start: 2005
  10. SIMVASTATINE [Concomitant]
     Active Substance: SIMVASTATIN
     Indication: HYPERCHOLESTEROLAEMIA
     Route: 048
     Dates: start: 2005
  11. OBINUTUZUMAB. [Suspect]
     Active Substance: OBINUTUZUMAB
     Indication: CHRONIC LYMPHOCYTIC LEUKAEMIA
     Dosage: 100 MG OR 1000 MG, DEPENDING ON SPLITTING RULES, AT CYCLE 1, DAY 1 (IF 100 MG WAS RECEIVED ON DAY 1,
     Route: 042
     Dates: start: 20160404
  12. LOSARTAN AND HYDROCHLOROTHIAZIDE [Concomitant]
     Active Substance: HYDROCHLOROTHIAZIDE\LOSARTAN POTASSIUM
     Indication: HYPERCHOLESTEROLAEMIA
     Route: 048
     Dates: start: 2005
  13. MAGNE B6 [Concomitant]
     Active Substance: MAGNESIUM\PYRIDOXINE
     Indication: MUSCLE SPASMS
     Route: 048
     Dates: start: 20160506

REACTIONS (1)
  - Hepatocellular carcinoma [Not Recovered/Not Resolved]

NARRATIVE: CASE EVENT DATE: 20190522
